FAERS Safety Report 5104015-X (Version None)
Quarter: 2006Q3

REPORT INFORMATION
  Report Type: 
  Country: None (occurrence: None)
  Receive Date: 20060908
  Receipt Date: 20060830
  Transmission Date: 20061208
  Serious: Yes (Other)
  Sender: FDA-Public Use
  Company Number: 2006105727

PATIENT
  Age: 74 Year
  Sex: Female
  Weight: 49.8957 kg

DRUGS (2)
  1. XALATAN [Suspect]
     Indication: GLAUCOMA
     Dosage: DAILY EVERY NIGHT), OPHTHALMIC
     Route: 047
     Dates: end: 20060829
  2. DRUG UNSPECIFIED (DRUG UNSPECIFIED) [Concomitant]

REACTIONS (3)
  - EYE PAIN [None]
  - FOREIGN BODY SENSATION IN EYES [None]
  - PHOTOPHOBIA [None]
